FAERS Safety Report 16341995 (Version 1)
Quarter: 2019Q2

REPORT INFORMATION
  Report Type: Spontaneous
  Country: US (occurrence: US)
  Receive Date: 20190522
  Receipt Date: 20190522
  Transmission Date: 20190711
  Serious: Yes (Hospitalization)
  Sender: FDA-Public Use
  Company Number: US-TEVA-2019-US-1052762

PATIENT
  Age: 76 Year
  Sex: Male

DRUGS (5)
  1. LEVODOPA/CARBIDOPA [Concomitant]
     Active Substance: CARBIDOPA\LEVODOPA
     Indication: PARKINSON^S DISEASE
     Dosage: 6 DOSAGE FORMS DAILY; LEVODOPA/CARBIDOPA, 25/100, 2 TABLETS TID
     Route: 065
  2. QUETIAPINE. [Suspect]
     Active Substance: QUETIAPINE
     Dosage: 25MG Q AM, MID-DAY 12.5MG AND 150MG Q PM
     Route: 065
  3. QUETIAPINE. [Suspect]
     Active Substance: QUETIAPINE
     Indication: NEUROPSYCHIATRIC SYMPTOMS
     Dosage: 12.5 MG Q AM AND 25MG Q PM
     Route: 065
  4. QUETIAPINE. [Suspect]
     Active Substance: QUETIAPINE
     Dosage: 100MG AM, 50MG MID-DAY + 150MG Q PM
     Route: 065
  5. RISPERIDONE. [Suspect]
     Active Substance: RISPERIDONE
     Indication: AGGRESSION
     Dosage: 2 MILLIGRAM DAILY;
     Route: 065

REACTIONS (5)
  - Incorrect dose administered [Unknown]
  - Contraindicated product administered [Unknown]
  - Delirium [Recovering/Resolving]
  - Cogwheel rigidity [Recovering/Resolving]
  - Depressed level of consciousness [Recovering/Resolving]
